FAERS Safety Report 9232090 (Version 3)
Quarter: 2013Q3

REPORT INFORMATION
  Report Type: Spontaneous
  Country: US (occurrence: US)
  Receive Date: 20130415
  Receipt Date: 20130823
  Transmission Date: 20140515
  Serious: No
  Sender: FDA-Public Use
  Company Number: US-PFIZER INC-2013112626

PATIENT
  Sex: Female

DRUGS (3)
  1. VISTARIL [Suspect]
     Dosage: UNK
  2. EFFEXOR XR [Suspect]
     Dosage: UNK
  3. FLOVENT HFA [Suspect]
     Dosage: UNK

REACTIONS (1)
  - Dyspnoea [Unknown]
